FAERS Safety Report 8423353-6 (Version None)
Quarter: 2012Q2

REPORT INFORMATION
  Report Type: 
  Country: None (occurrence: None)
  Receive Date: 20120608
  Receipt Date: 20120530
  Transmission Date: 20120825
  Serious: Yes (Death)
  Sender: FDA-Public Use
  Company Number: JP-ACTELION-A-CH2012-66593

PATIENT
  Sex: Male
  Weight: 54.8 kg

DRUGS (8)
  1. SULFAMETHOXAZOLE AND TRIMETHOPRIM [Concomitant]
  2. HEPARIN SODIUM [Concomitant]
  3. ALENDRONATE SODIUM [Concomitant]
  4. OXYGEN [Concomitant]
  5. TRACLEER [Suspect]
     Indication: PULMONARY HYPERTENSION
     Dosage: 125 MG, BID
     Route: 048
     Dates: start: 20111020, end: 20111030
  6. PREDNISOLONE [Concomitant]
  7. TRACLEER [Suspect]
     Dosage: 62.5 MG, QD
     Route: 048
     Dates: start: 20111013, end: 20111019
  8. RABEPRAZOLE SODIUM [Concomitant]

REACTIONS (4)
  - HAEMOPTYSIS [None]
  - CARDIAC ARREST [None]
  - THROMBOSIS [None]
  - FEELING ABNORMAL [None]
